FAERS Safety Report 9848044 (Version 1)
Quarter: 2014Q1

REPORT INFORMATION
  Report Type: Spontaneous
  Country: US (occurrence: None)
  Receive Date: 20140123
  Receipt Date: 20140123
  Transmission Date: 20141002
  Serious: Yes (Hospitalization)
  Sender: FDA-Public Use
  Company Number: None

PATIENT
  Age: 64 None
  Sex: Male
  Weight: 77.4 kg

DRUGS (1)
  1. SULFAMETHOXAZOLE/TRIMETHOPRIM [Suspect]
     Indication: PROPHYLAXIS

REACTIONS (6)
  - Rash generalised [None]
  - Muscle tightness [None]
  - Angioedema [None]
  - Urticaria [None]
  - Pruritus [None]
  - Purpura [None]
